FAERS Safety Report 4608507-9 (Version None)
Quarter: 2005Q1

REPORT INFORMATION
  Report Type: 
  Country: None (occurrence: None)
  Receive Date: 20050315
  Receipt Date: 20050309
  Transmission Date: 20050727
  Serious: Yes (Life-Threatening)
  Sender: FDA-Public Use
  Company Number: 200512229GDDC

PATIENT
  Age: 72 Year
  Sex: Male

DRUGS (8)
  1. CLEXANE [Suspect]
     Indication: ANGINA UNSTABLE
     Route: 058
     Dates: start: 20020517, end: 20020518
  2. ACETYLSALICYLIC ACID SRT [Suspect]
     Route: 048
  3. TETRACAINE POLYGYL STERILE OPHTHALMIC SOLUTION [Concomitant]
     Route: 048
  4. INSULIN ISOPHANE [Concomitant]
     Dosage: DOSE UNIT: UNITS
     Route: 058
  5. PAROXETINE HCL [Concomitant]
     Route: 048
  6. OMEPRAZOLE [Concomitant]
  7. FERROGRADUMET [Concomitant]
  8. LACTULOSE [Concomitant]

REACTIONS (2)
  - CEREBRAL HAEMORRHAGE [None]
  - HEMIPARESIS [None]
